FAERS Safety Report 18977309 (Version 1)
Quarter: 2021Q1

REPORT INFORMATION
  Report Type: Spontaneous
  Country: AE (occurrence: AE)
  Receive Date: 20210306
  Receipt Date: 20210306
  Transmission Date: 20210420
  Serious: Yes (Other)
  Sender: FDA-Public Use
  Company Number: AE-ACCORD-218559

PATIENT
  Age: 2 Year
  Sex: Female

DRUGS (3)
  1. CISPLATIN. [Suspect]
     Active Substance: CISPLATIN
     Indication: CHORIOCARCINOMA
     Dosage: DAY 1?5
  2. BLEOMYCIN [Suspect]
     Active Substance: BLEOMYCIN SULFATE
     Indication: CHORIOCARCINOMA
     Dosage: 15 UNIT/M2/DOSE, DAY 1
  3. ETOPOSIDE. [Suspect]
     Active Substance: ETOPOSIDE
     Indication: CHORIOCARCINOMA
     Dosage: DAY 1?5

REACTIONS (2)
  - Haemoglobin decreased [Unknown]
  - Tumour rupture [Unknown]
